FAERS Safety Report 7355074-5 (Version None)
Quarter: 2011Q1

REPORT INFORMATION
  Report Type: 
  Country: None (occurrence: None)
  Receive Date: 20110316
  Receipt Date: 20110311
  Transmission Date: 20110831
  Serious: Yes (Other)
  Sender: FDA-Public Use
  Company Number: NO-PFIZER INC-2011054049

PATIENT
  Age: 55 Year
  Sex: Male

DRUGS (3)
  1. CHAMPIX [Suspect]
     Indication: SMOKING CESSATION THERAPY
     Dosage: 0.5 MG, 1X/DAY
     Dates: start: 20110131, end: 20110202
  2. CHAMPIX [Suspect]
     Dosage: 0.5 MG, 2X/DAY
     Dates: start: 20110203, end: 20110206
  3. CHAMPIX [Suspect]
     Dosage: 1 MG, 2X/DAY
     Dates: start: 20110207, end: 20110306

REACTIONS (6)
  - INDIFFERENCE [None]
  - ANXIETY [None]
  - HYPERHIDROSIS [None]
  - STRESS [None]
  - DIZZINESS [None]
  - INSOMNIA [None]
